FAERS Safety Report 13503354 (Version 1)
Quarter: 2017Q2

REPORT INFORMATION
  Report Type: Spontaneous
  Country: US (occurrence: US)
  Receive Date: 20170502
  Receipt Date: 20170502
  Transmission Date: 20170830
  Serious: Yes (Other)
  Sender: FDA-Public Use
  Company Number: None

PATIENT
  Age: 50 Year
  Sex: Male
  Weight: 82.35 kg

DRUGS (1)
  1. SIMVASTATIN. [Suspect]
     Active Substance: SIMVASTATIN
     Indication: HYPERLIPIDAEMIA
     Route: 048
     Dates: start: 20140724, end: 20170401

REACTIONS (9)
  - Autoimmune hepatitis [None]
  - Drug-induced liver injury [None]
  - Cholestasis [None]
  - Nausea [None]
  - Jaundice [None]
  - Abdominal distension [None]
  - Hepatitis [None]
  - Decreased appetite [None]
  - Early satiety [None]

NARRATIVE: CASE EVENT DATE: 20170324
